FAERS Safety Report 9989454 (Version 2)
Quarter: 2014Q1

REPORT INFORMATION
  Report Type: Report from Study
  Country: US (occurrence: US)
  Receive Date: 20140310
  Receipt Date: 20140310
  Transmission Date: 20141002
  Serious: No
  Sender: FDA-Public Use
  Company Number: US-ABBVIE-13P-163-1091633-00

PATIENT
  Age: 33 Year
  Sex: Female

DRUGS (8)
  1. HUMIRA [Suspect]
     Indication: CROHN^S DISEASE
     Route: 058
     Dates: start: 20130312
  2. PRILOSEC [Concomitant]
     Indication: GASTROOESOPHAGEAL REFLUX DISEASE
  3. ATIVAN [Concomitant]
     Indication: ANXIETY
  4. BENTYL [Concomitant]
     Indication: GASTROINTESTINAL DISORDER
  5. MULTIVITAMINS WITH MINERALS [Concomitant]
     Indication: PRODUCT USED FOR UNKNOWN INDICATION
  6. ZZZQUIL [Concomitant]
     Indication: INSOMNIA
     Dosage: SOMETIMES
  7. TYLENOL PM [Concomitant]
     Indication: INSOMNIA
     Dosage: SOMETIMES
  8. LUNESTA [Concomitant]
     Indication: INSOMNIA
     Dosage: 2-3 TIMES/WEEK

REACTIONS (5)
  - Wound drainage [Recovered/Resolved]
  - Abscess [Not Recovered/Not Resolved]
  - Fistula [Not Recovered/Not Resolved]
  - Wound drainage [Not Recovered/Not Resolved]
  - Pruritus [Not Recovered/Not Resolved]
